FAERS Safety Report 23346536 (Version 1)
Quarter: 2023Q4

REPORT INFORMATION
  Report Type: Spontaneous
  Country: GB (occurrence: GB)
  Receive Date: 20231228
  Receipt Date: 20231228
  Transmission Date: 20240109
  Serious: Yes (Other)
  Sender: FDA-Public Use
  Company Number: GB-MHRA-TPP17385573C8622510YC1702559540104

PATIENT
  Age: 57 Year
  Sex: Male
  Weight: 87 kg

DRUGS (6)
  1. TAMSULOSIN [Suspect]
     Active Substance: TAMSULOSIN
     Indication: Ill-defined disorder
     Dosage: UNK
     Route: 065
     Dates: start: 20231213
  2. ATORVASTATIN [Concomitant]
     Active Substance: ATORVASTATIN
     Indication: Ill-defined disorder
     Dosage: TAKE ONE TABLET ONCE A DAY
     Route: 065
     Dates: start: 20220908
  3. BISOPROLOL [Concomitant]
     Active Substance: BISOPROLOL\BISOPROLOL FUMARATE
     Indication: Ill-defined disorder
     Dosage: TAKE ONE DAILY
     Route: 065
     Dates: start: 20220908
  4. FLECAINIDE ACETATE [Concomitant]
     Active Substance: FLECAINIDE ACETATE
     Indication: Ill-defined disorder
     Dosage: TAKE ONE TABLET TWICE A DAY
     Route: 065
     Dates: start: 20220908
  5. GOSERELIN [Concomitant]
     Active Substance: GOSERELIN
     Indication: Ill-defined disorder
     Dosage: 10.8MG BY SUBCUTANEOUS INJECTION EVERY 12 WEEKS
     Route: 065
     Dates: start: 20220824
  6. TAMSULOSIN HYDROCHLORIDE [Concomitant]
     Active Substance: TAMSULOSIN HYDROCHLORIDE
     Indication: Ill-defined disorder
     Dosage: TAKE ONE DAILY
     Route: 065
     Dates: start: 20221215, end: 20231213

REACTIONS (1)
  - Syncope [Recovered/Resolved]

NARRATIVE: CASE EVENT DATE: 20231214
